FAERS Safety Report 8839145 (Version 1)
Quarter: 2012Q4

REPORT INFORMATION
  Report Type: 
  Country: US (occurrence: US)
  Receive Date: 20121015
  Receipt Date: 20121015
  Transmission Date: 20130627
  Serious: No
  Sender: FDA-Public Use
  Company Number: US-BIOGENIDEC-2012BI043377

PATIENT
  Age: 54 Year
  Sex: Female

DRUGS (1)
  1. AVONEX [Suspect]
     Indication: MULTIPLE SCLEROSIS
     Route: 030
     Dates: start: 20080911, end: 20120501

REACTIONS (6)
  - Burning sensation [Recovered/Resolved]
  - Aphasia [Recovered/Resolved]
  - Mobility decreased [Recovered/Resolved]
  - Fear [Recovered/Resolved]
  - Muscle spasms [Unknown]
  - Headache [Recovered/Resolved]
